FAERS Safety Report 15470542 (Version 1)
Quarter: 2018Q4

REPORT INFORMATION
  Report Type: Report from Study
  Country: BE (occurrence: BE)
  Receive Date: 20181005
  Receipt Date: 20181005
  Transmission Date: 20190205
  Serious: Yes (Death, Life-Threatening, Hospitalization, Other)
  Sender: FDA-Public Use
  Company Number: BE-PFIZER INC-2018213771

PATIENT
  Age: 61 Year
  Sex: Female
  Weight: 43 kg

DRUGS (12)
  1. MEDROL [Concomitant]
     Active Substance: METHYLPREDNISOLONE
     Route: 065
     Dates: start: 20170403, end: 20170606
  2. SOLUVIT NOVUM [VITAMINS NOS] [Concomitant]
     Dosage: 1 DF, 1X/DAY
     Route: 065
     Dates: start: 20170606, end: 20170619
  3. AFLIBERCEPT [Suspect]
     Active Substance: AFLIBERCEPT
     Dosage: UNK, CYCLIC
     Route: 042
  4. OXYNORM [Concomitant]
     Active Substance: OXYCODONE HYDROCHLORIDE
     Dosage: 2 DF, 1X/DAY
     Dates: start: 20170606
  5. FLUOROURACIL. [Suspect]
     Active Substance: FLUOROURACIL
     Indication: COLORECTAL CANCER METASTATIC
     Dosage: UNK, CYCLIC
     Route: 040
  6. IRINOTECAN HCL [Suspect]
     Active Substance: IRINOTECAN HYDROCHLORIDE
     Indication: COLORECTAL CANCER METASTATIC
     Dosage: UNK, CYCLIC
     Route: 042
  7. PANTOMED [DEXPANTHENOL] [Concomitant]
     Route: 065
     Dates: start: 20170210, end: 20170606
  8. OXYNORM [Concomitant]
     Active Substance: OXYCODONE HYDROCHLORIDE
     Dosage: 2 DF, 1X/DAY
     Route: 065
     Dates: start: 20170210
  9. CALCIUM FOLINATE [Suspect]
     Active Substance: LEUCOVORIN CALCIUM
     Indication: COLORECTAL CANCER METASTATIC
     Dosage: UNK, CYCLIC
     Route: 042
  10. FLUOROURACIL. [Suspect]
     Active Substance: FLUOROURACIL
     Dosage: UNK, CYCLIC
     Route: 042
  11. IMODIUM [Concomitant]
     Active Substance: LOPERAMIDE HYDROCHLORIDE
     Dosage: UNK
     Route: 065
     Dates: start: 20170526, end: 20170606
  12. AFLIBERCEPT [Suspect]
     Active Substance: AFLIBERCEPT
     Indication: COLORECTAL CANCER METASTATIC
     Dosage: UNK, CYCLIC
     Route: 042
     Dates: start: 20170504, end: 20170504

REACTIONS (14)
  - Pain [Recovered/Resolved]
  - Cholangitis [Recovered/Resolved]
  - Urinary tract infection [Recovered/Resolved]
  - General physical health deterioration [Fatal]
  - Liver abscess [Recovered/Resolved]
  - Pyrexia [Recovered/Resolved]
  - Abdominal pain [Recovered/Resolved]
  - Vulval disorder [Recovered/Resolved]
  - Diarrhoea [Recovered/Resolved]
  - Pelvic pain [Recovered/Resolved]
  - Sepsis [Recovered/Resolved]
  - Urinary tract infection [Recovered/Resolved]
  - Abdominal pain [Recovered/Resolved]
  - Liver abscess [Recovered/Resolved]

NARRATIVE: CASE EVENT DATE: 20170518
